FAERS Safety Report 17890176 (Version 2)
Quarter: 2020Q2

REPORT INFORMATION
  Report Type: Report from Study
  Country: IN (occurrence: IN)
  Receive Date: 20200612
  Receipt Date: 20200622
  Transmission Date: 20200714
  Serious: No
  Sender: FDA-Public Use
  Company Number: NVSC2020IN019595

PATIENT
  Age: 60 Year
  Sex: Male
  Weight: 75 kg

DRUGS (6)
  1. GALVUS MET [Suspect]
     Active Substance: METFORMIN HYDROCHLORIDE\VILDAGLIPTIN
     Indication: DIABETES MELLITUS
     Dosage: 1 DF, BID POST MEAL (50MG VILDAGLIPTIN AND 500MG METFORMIN), SINCE FIVE TO TEN YEAR
     Route: 048
  2. LANTUS [Concomitant]
     Active Substance: INSULIN GLARGINE
     Indication: DIABETES MELLITUS
     Dosage: 1 DF, BID
     Route: 058
  3. AMARYL [Concomitant]
     Active Substance: GLIMEPIRIDE
     Indication: DIABETES MELLITUS
     Dosage: 1 DF, BID
     Route: 048
  4. GALVUS MET [Suspect]
     Active Substance: METFORMIN HYDROCHLORIDE\VILDAGLIPTIN
     Dosage: (50 MG VILDIGLIPTIN AND 1000 MG METFORMIN)
     Route: 048
  5. GALVUS MET [Suspect]
     Active Substance: METFORMIN HYDROCHLORIDE\VILDAGLIPTIN
     Dosage: 1 DF, BID (50MG VILDAGLIPTIN AND 500MG METFORMIN)
     Route: 048
  6. REMO [Concomitant]
     Active Substance: MOSAPRIDE CITRATE
     Indication: DIABETES MELLITUS
     Dosage: 1 DF, BID  (POST MEAL)
     Route: 048

REACTIONS (3)
  - Blood glucose abnormal [Unknown]
  - Hyperglycaemia [Unknown]
  - Blood glucose increased [Unknown]

NARRATIVE: CASE EVENT DATE: 20200119
